FAERS Safety Report 4562899-8 (Version None)
Quarter: 2005Q1

REPORT INFORMATION
  Report Type: 
  Country: None (occurrence: None)
  Receive Date: 20050121
  Receipt Date: 20050103
  Transmission Date: 20050727
  Serious: Yes (Congenital Anomaly)
  Sender: FDA-Public Use
  Company Number: GXKR2005DK00479

PATIENT

DRUGS (3)
  1. PAROXETINE (NGX)(PAROXETINE) [Suspect]
     Dosage: 40 MG, TRANSPLACENTAL
     Route: 064
  2. SEROXAT ^NOVO NORDISK^ (PAROXETINE HYDROCHLORIDE) [Suspect]
     Dosage: 40 MG, TRANSPLACENTAL
     Route: 064
  3. SELO-ZOK(METOPROLOL SUCCINATE) [Suspect]
     Dosage: 50 MG, TRANSPLACENTAL
     Route: 064

REACTIONS (5)
  - CONGENITAL GENITOURINARY ABNORMALITY [None]
  - DRUG EXPOSURE DURING PREGNANCY [None]
  - KIDNEY MALFORMATION [None]
  - SINGLE FUNCTIONAL KIDNEY [None]
  - URINARY TRACT MALFORMATION [None]
